APPROVED DRUG PRODUCT: MOTRIN IB
Active Ingredient: IBUPROFEN
Strength: 200MG
Dosage Form/Route: TABLET;ORAL
Application: N019012 | Product #003
Applicant: KENVUE BRANDS LLC
Approved: Dec 17, 1990 | RLD: Yes | RS: No | Type: OTC